FAERS Safety Report 18537805 (Version 2)
Quarter: 2020Q4

REPORT INFORMATION
  Report Type: Spontaneous
  Country: US (occurrence: US)
  Receive Date: 20201123
  Receipt Date: 20201207
  Transmission Date: 20210114
  Serious: No
  Sender: FDA-Public Use
  Company Number: US-SUNOVION-2020SUN003461

PATIENT
  Age: 71 Year
  Sex: Female

DRUGS (1)
  1. LONHALA MAGNAIR [Suspect]
     Active Substance: GLYCOPYRROLATE
     Dosage: 25 ?G
     Route: 055

REACTIONS (8)
  - Device breakage [Unknown]
  - Head discomfort [Unknown]
  - Nervousness [Unknown]
  - Device power source issue [Unknown]
  - Respiratory tract congestion [Unknown]
  - Product dose omission issue [Unknown]
  - Dyspnoea [Unknown]
  - Device issue [Unknown]
